FAERS Safety Report 18654238 (Version 1)
Quarter: 2020Q4

REPORT INFORMATION
  Report Type: Spontaneous
  Country: US (occurrence: US)
  Receive Date: 20201223
  Receipt Date: 20201223
  Transmission Date: 20210114
  Serious: Yes (Death, Other)
  Sender: FDA-Public Use
  Company Number: US-009507513-2012USA008426

PATIENT
  Age: 18 Year
  Sex: Male

DRUGS (4)
  1. COZAAR [Suspect]
     Active Substance: LOSARTAN POTASSIUM
     Dosage: UNK, ROUTE: INGESTION
     Route: 048
  2. AMLODIPINE [Suspect]
     Active Substance: AMLODIPINE BESYLATE
     Dosage: UNK, ROUTE: INGESTION
     Route: 048
  3. CARVEDILOL. [Suspect]
     Active Substance: CARVEDILOL
     Dosage: UNK, ROUTE: INGESTION
     Route: 048
  4. ALCOHOL. [Suspect]
     Active Substance: ALCOHOL
     Dosage: UNK, ROUTE: INGESTION
     Route: 048

REACTIONS (1)
  - Suspected suicide [Fatal]
